FAERS Safety Report 5538428-9 (Version None)
Quarter: 2007Q4

REPORT INFORMATION
  Report Type: 
  Country: None (occurrence: None)
  Receive Date: 20071205
  Receipt Date: 20071121
  Transmission Date: 20080405
  Serious: Yes (Life-Threatening, Hospitalization)
  Sender: FDA-Public Use
  Company Number: US021286

PATIENT
  Age: 27 Year
  Sex: Female
  Weight: 101 kg

DRUGS (4)
  1. ALERTEC [Suspect]
     Indication: NARCOLEPSY
     Dosage: ORAL
     Route: 048
     Dates: start: 20070801, end: 20070909
  2. SYNTHROID [Concomitant]
  3. YASMIN [Concomitant]
  4. CIPRALEX /01588501/ [Concomitant]

REACTIONS (1)
  - STEVENS-JOHNSON SYNDROME [None]
